FAERS Safety Report 7358566-8 (Version None)
Quarter: 2011Q1

REPORT INFORMATION
  Report Type: 
  Country: None (occurrence: None)
  Receive Date: 20110317
  Receipt Date: 20110304
  Transmission Date: 20110831
  Serious: Yes (Other)
  Sender: FDA-Public Use
  Company Number: US-WATSON-2011-02793

PATIENT
  Sex: Male

DRUGS (1)
  1. ALLOPURINOL [Suspect]
     Indication: GOUT
     Dosage: UNK
     Route: 048
     Dates: start: 20080201

REACTIONS (18)
  - SKIN REACTION [None]
  - HYPERSENSITIVITY [None]
  - TOXIC EPIDERMAL NECROLYSIS [None]
  - SKIN DISCOLOURATION [None]
  - SWELLING [None]
  - PREDISPOSITION TO DISEASE [None]
  - STEVENS-JOHNSON SYNDROME [None]
  - THERMAL BURN [None]
  - SCAR [None]
  - SKIN LESION [None]
  - RASH [None]
  - SKIN EXFOLIATION [None]
  - URTICARIA [None]
  - MUCOUS MEMBRANE DISORDER [None]
  - PRURITUS [None]
  - ALOPECIA [None]
  - ONYCHOMADESIS [None]
  - SKIN HYPOPIGMENTATION [None]
